FAERS Safety Report 6270885-5 (Version None)
Quarter: 2009Q3

REPORT INFORMATION
  Report Type: 
  Country: None (occurrence: None)
  Receive Date: 20090716
  Receipt Date: 20090710
  Transmission Date: 20100115
  Serious: Yes (Other)
  Sender: FDA-Public Use
  Company Number: GR-ABBOTT-09P-066-0584507-00

PATIENT
  Age: 19 Year
  Sex: Male

DRUGS (4)
  1. DEPAKENE [Suspect]
     Indication: EPILEPSY
     Route: 048
     Dates: start: 19930101, end: 19950101
  2. TOPAMAC [Concomitant]
     Indication: DRUG USE FOR UNKNOWN INDICATION
     Route: 048
     Dates: start: 20010101
  3. FRISIUM [Concomitant]
     Indication: DRUG USE FOR UNKNOWN INDICATION
     Route: 048
     Dates: start: 19980101
  4. DEPAKINE CHRONOSPHERE [Concomitant]
     Indication: EPILEPSY
     Route: 048
     Dates: start: 20080501, end: 20081201

REACTIONS (5)
  - CONVULSION [None]
  - DRUG LEVEL DECREASED [None]
  - GASTRITIS [None]
  - OESOPHAGITIS [None]
  - VOMITING [None]
